FAERS Safety Report 21766925 (Version 1)
Quarter: 2022Q4

REPORT INFORMATION
  Report Type: Report from Study
  Country: IE (occurrence: None)
  Receive Date: 20221222
  Receipt Date: 20221222
  Transmission Date: 20230113
  Serious: Yes (Other)
  Sender: FDA-Public Use
  Company Number: IE-Merck Healthcare KGaA-9374108

PATIENT
  Sex: Female

DRUGS (4)
  1. MAVENCLAD [Suspect]
     Active Substance: CLADRIBINE
     Indication: Relapsing-remitting multiple sclerosis
     Dosage: YEAR ONE WEEK ONE THERAPY: TWO DOSAGE FORM ON DAYS 1 TO 4 AND ONE DOSAGE FORM ON DAY 5
     Route: 048
     Dates: start: 20210511
  2. MAVENCLAD [Suspect]
     Active Substance: CLADRIBINE
     Dosage: YEAR ONE WEEK FIVE THERAPY: TWO DOSAGE FORM ON DAYS 1 TO 4 AND ONE DOSAGE FORM ON DAY 5
     Route: 048
     Dates: start: 20210621
  3. MAVENCLAD [Suspect]
     Active Substance: CLADRIBINE
     Dosage: YEAR TWO WEEK ONE THERAPY: TWO DOSAGE FORM ON DAYS 1 TO 4 AND ONE DOSAGE FORM ON DAY 5
     Route: 048
     Dates: start: 20220530
  4. MAVENCLAD [Suspect]
     Active Substance: CLADRIBINE
     Dosage: YEAR TWO WEEK FIVE THERAPY: TWO DOSAGE FORM ON DAYS 1 TO 4 AND ONE DOSAGE FORM ON DAY 5
     Route: 048
     Dates: start: 20220627

REACTIONS (1)
  - Pneumonia [Not Recovered/Not Resolved]
